FAERS Safety Report 6086825-8 (Version None)
Quarter: 2009Q1

REPORT INFORMATION
  Report Type: 
  Country: None (occurrence: None)
  Receive Date: 20090223
  Receipt Date: 20090211
  Transmission Date: 20090719
  Serious: Yes (Other)
  Sender: FDA-Public Use
  Company Number: FR-PFIZER INC-2009169470

PATIENT

DRUGS (2)
  1. LYRICA [Suspect]
     Indication: GAIT DISTURBANCE
     Dosage: 75 MG, 2X/DAY
     Dates: start: 20080101
  2. SERETIDE [Concomitant]
     Dosage: UNK

REACTIONS (2)
  - CARDIOMEGALY [None]
  - DYSPNOEA EXERTIONAL [None]
